FAERS Safety Report 9065247 (Version 1)
Quarter: 2013Q1

REPORT INFORMATION
  Report Type: Report from Study
  Country: US (occurrence: US)
  Receive Date: 20130130
  Receipt Date: 20130130
  Transmission Date: 20140127
  Serious: No
  Sender: FDA-Public Use
  Company Number: US-ABBOTT-12P-163-0968935-00

PATIENT
  Sex: Female
  Weight: 49.49 kg

DRUGS (11)
  1. HUMIRA 40 MG/0.8 ML PEN [Suspect]
     Indication: RHEUMATOID ARTHRITIS
     Dates: start: 20120403
  2. HYDROXYCHLOROQUINE [Concomitant]
     Indication: RHEUMATOID ARTHRITIS
  3. NEXIUM [Concomitant]
     Indication: GASTROOESOPHAGEAL REFLUX DISEASE
  4. BUPROPION [Concomitant]
     Indication: DEPRESSION
  5. WARFARIN [Concomitant]
     Indication: PROTEIN C DEFICIENCY
  6. WARFARIN [Concomitant]
     Indication: THROMBOSIS
  7. CALTRATE WITH VITAMIN D [Concomitant]
     Indication: SUPPLEMENTATION THERAPY
  8. WOMEN^S MULTI [Concomitant]
     Indication: VITAMIN SUPPLEMENTATION
  9. RED YEAST RICE [Concomitant]
     Indication: BLOOD CHOLESTEROL INCREASED
  10. CLORAZEPATE [Concomitant]
     Indication: ANXIETY
  11. TYLENOL [Concomitant]
     Indication: PRODUCT USED FOR UNKNOWN INDICATION

REACTIONS (5)
  - Dysstasia [Not Recovered/Not Resolved]
  - Back pain [Not Recovered/Not Resolved]
  - Pain in extremity [Not Recovered/Not Resolved]
  - Onychomycosis [Not Recovered/Not Resolved]
  - Onychomadesis [Not Recovered/Not Resolved]
